FAERS Safety Report 4968523-4 (Version None)
Quarter: 2006Q2

REPORT INFORMATION
  Report Type: 
  Country: None (occurrence: None)
  Receive Date: 20060410
  Receipt Date: 20051102
  Transmission Date: 20061013
  Serious: Yes (Death)
  Sender: FDA-Public Use
  Company Number: IT-AVENTIS-200514129EU

PATIENT
  Age: 92 Year
  Sex: Male

DRUGS (10)
  1. CLEXANE [Suspect]
     Indication: DEEP VEIN THROMBOSIS
     Dates: start: 20041126, end: 20041127
  2. CLEXANE [Suspect]
     Dates: start: 20041128, end: 20041202
  3. CLEXANE [Suspect]
     Dates: start: 20041203, end: 20041205
  4. CLEXANE [Suspect]
     Dates: start: 20041206, end: 20041212
  5. ADALAT [Concomitant]
     Indication: HYPERTENSION
     Dates: start: 20041126, end: 20041127
  6. NITRGLYCERIN TRANSDERMAL SYSTEM [Concomitant]
  7. CASODEX [Concomitant]
     Indication: PROSTATE CANCER
     Dates: start: 20041126, end: 20041212
  8. MADOPAR [Concomitant]
     Dates: start: 20041126, end: 20041212
  9. LASIX [Concomitant]
     Indication: GENERALISED OEDEMA
     Route: 048
     Dates: start: 20041206, end: 20041212
  10. VELAMOX [Concomitant]
     Indication: ESCHERICHIA SEPSIS
     Route: 042
     Dates: start: 20041201, end: 20041210

REACTIONS (16)
  - ABDOMINAL PAIN UPPER [None]
  - ASTHENIA [None]
  - BLOOD PRESSURE SYSTOLIC INCREASED [None]
  - CHEST PAIN [None]
  - DIARRHOEA HAEMORRHAGIC [None]
  - ESCHERICHIA URINARY TRACT INFECTION [None]
  - HAEMATOCHEZIA [None]
  - HAEMATURIA [None]
  - PAIN IN EXTREMITY [None]
  - PRURITUS [None]
  - PULMONARY EMBOLISM [None]
  - PYREXIA [None]
  - RECTAL HAEMORRHAGE [None]
  - RESPIRATORY DISORDER [None]
  - URINARY TRACT INFECTION [None]
  - WHEEZING [None]
